FAERS Safety Report 9295337 (Version 1)
Quarter: 2013Q2

REPORT INFORMATION
  Report Type: Spontaneous
  Country: CN (occurrence: CN)
  Receive Date: 20130517
  Receipt Date: 20130517
  Transmission Date: 20140414
  Serious: Yes (Other)
  Sender: FDA-Public Use
  Company Number: CN-MYLANLABS-2013S1009813

PATIENT
  Age: 29 Year
  Sex: Male

DRUGS (1)
  1. BROMOCRIPTINE [Suspect]
     Indication: PROLACTINOMA
     Dosage: GRADUALLY INCREASED TO 15 MG/D
     Route: 065

REACTIONS (1)
  - Bone erosion [Not Recovered/Not Resolved]
